FAERS Safety Report 11094909 (Version 1)
Quarter: 2015Q2

REPORT INFORMATION
  Report Type: Spontaneous
  Country: FR (occurrence: FR)
  Receive Date: 20150506
  Receipt Date: 20150506
  Transmission Date: 20150821
  Serious: Yes (Hospitalization)
  Sender: FDA-Public Use
  Company Number: FR-PFIZER INC-2015150182

PATIENT
  Age: 59 Year
  Sex: Female

DRUGS (8)
  1. KARDEGIC [Suspect]
     Active Substance: ASPIRIN LYSINE
     Indication: HEPATIC ARTERY STENOSIS
     Dosage: 75 MG, 1X/DAY
     Route: 048
     Dates: start: 201408, end: 20150315
  2. CELLCEPT [Concomitant]
     Active Substance: MYCOPHENOLATE MOFETIL\MYCOPHENOLATE MOFETIL HYDROCHLORIDE
     Dosage: 500 MG, 2X/DAY
     Route: 048
     Dates: start: 201403
  3. URSOLVAN [Concomitant]
     Active Substance: URSODIOL
     Dosage: 200 MG, 3X/DAY
     Route: 048
  4. BACTRIM [Concomitant]
     Active Substance: SULFAMETHOXAZOLE\TRIMETHOPRIM
     Dosage: 1 DF, 3X/WEEK
     Route: 048
     Dates: start: 2014
  5. KARDEGIC [Suspect]
     Active Substance: ASPIRIN LYSINE
     Dosage: 75 MG, 1X/DAY
     Route: 048
     Dates: start: 20150323, end: 20150325
  6. ADVAGRAF [Concomitant]
     Active Substance: TACROLIMUS
     Dosage: 10 MG, 1X/DAY
     Route: 048
     Dates: start: 201403
  7. AMLOR [Suspect]
     Active Substance: AMLODIPINE BESYLATE
     Dosage: UNK
     Route: 048
     Dates: end: 20150322
  8. INEXIUM /01479302/ [Concomitant]
     Active Substance: ESOMEPRAZOLE MAGNESIUM
     Dosage: UNK

REACTIONS (1)
  - Rectal haemorrhage [Recovered/Resolved]

NARRATIVE: CASE EVENT DATE: 20150314
